FAERS Safety Report 23310252 (Version 1)
Quarter: 2023Q4

REPORT INFORMATION
  Report Type: Other
  Country: FR (occurrence: FR)
  Receive Date: 20231218
  Receipt Date: 20231218
  Transmission Date: 20240109
  Serious: Yes (Hospitalization)
  Sender: FDA-Public Use
  Company Number: None

PATIENT

DRUGS (1)
  1. RUXOLITINIB [Suspect]
     Active Substance: RUXOLITINIB
     Indication: Myocarditis
     Dosage: 40 MG, QD
     Route: 048
     Dates: start: 20231009, end: 20231023

REACTIONS (1)
  - Renal artery thrombosis [Recovering/Resolving]

NARRATIVE: CASE EVENT DATE: 20231023
